FAERS Safety Report 6916511-0 (Version None)
Quarter: 2010Q3

REPORT INFORMATION
  Report Type: 
  Country: None (occurrence: None)
  Receive Date: 20100810
  Receipt Date: 20100728
  Transmission Date: 20110219
  Serious: Yes (Other)
  Sender: FDA-Public Use
  Company Number: US-BAUSCH-2010BL004134

PATIENT
  Age: 11 Year
  Sex: Male

DRUGS (1)
  1. CIPROFLOXACIN [Suspect]
     Indication: PHARYNGITIS STREPTOCOCCAL
     Dates: start: 20090101, end: 20090101

REACTIONS (1)
  - LINEAR IGA DISEASE [None]
